FAERS Safety Report 7995851-0 (Version None)
Quarter: 2011Q4

REPORT INFORMATION
  Report Type: 
  Country: None (occurrence: None)
  Receive Date: 20111220
  Receipt Date: 20111214
  Transmission Date: 20120403
  Serious: Yes (Hospitalization)
  Sender: FDA-Public Use
  Company Number: GB-JNJFOC-20111208659

PATIENT
  Age: 70 Year
  Sex: Male
  Weight: 72 kg

DRUGS (11)
  1. ANESTHETICS [Concomitant]
     Indication: HIP ARTHROPLASTY
     Dates: start: 20111116
  2. ALLOPURINOL [Concomitant]
  3. BENDROFLUMETHIAZIDE [Concomitant]
     Dates: end: 20111125
  4. ACETYLSALICYLIC ACID SRT [Suspect]
     Indication: ILL-DEFINED DISORDER
     Route: 048
     Dates: end: 20111124
  5. MORPHINE SULFATE [Concomitant]
  6. RIVAROXABAN [Suspect]
     Indication: HIP ARTHROPLASTY
     Route: 065
     Dates: start: 20111116, end: 20111124
  7. SIMVASTATIN [Concomitant]
  8. ATENOLOL [Concomitant]
  9. RAMIPRIL [Concomitant]
  10. MORPHINE SULFATE [Concomitant]
  11. ZOLPIDEM [Concomitant]

REACTIONS (5)
  - HAEMOGLOBIN DECREASED [None]
  - OEDEMA PERIPHERAL [None]
  - HEADACHE [None]
  - POST PROCEDURAL HAEMATOMA [None]
  - PYREXIA [None]
